FAERS Safety Report 8547795 (Version 4)
Quarter: 2014Q4

REPORT INFORMATION
  Report Type: Report from Study
  Country: FR (occurrence: FR)
  Receive Date: 20120504
  Receipt Date: 20141023
  Transmission Date: 20150529
  Serious: Yes (Death, Hospitalization)
  Sender: FDA-Public Use
  Company Number: FR-TEVA-336031USA

PATIENT
  Age: 70 Year
  Sex: Male
  Weight: 69 kg

DRUGS (11)
  1. DETENSIEL [Concomitant]
     Active Substance: BISOPROLOL FUMARATE
     Indication: HYPERTENSION
     Route: 048
     Dates: end: 20120403
  2. ZELITREX [Concomitant]
     Active Substance: VALACYCLOVIR HYDROCHLORIDE
  3. LOVENOX [Concomitant]
     Active Substance: ENOXAPARIN SODIUM
     Indication: VASCULAR COMPRESSION
     Route: 058
     Dates: start: 201202, end: 20120403
  4. XYZAL [Concomitant]
     Active Substance: LEVOCETIRIZINE DIHYDROCHLORIDE
     Indication: SKIN TOXICITY
     Route: 048
     Dates: start: 20120402, end: 20120403
  5. HYDROCORTISONE. [Concomitant]
     Active Substance: HYDROCORTISONE
     Indication: SKIN TOXICITY
     Dates: start: 20120402, end: 20120403
  6. RITUXIMAB [Suspect]
     Active Substance: RITUXIMAB
     Indication: MANTLE CELL LYMPHOMA
     Dosage: 670 MILLIGRAM DAILY;
     Route: 041
     Dates: start: 20120228, end: 20120327
  7. LASILIX [Concomitant]
     Active Substance: FUROSEMIDE
     Indication: PLEURAL EFFUSION
     Dosage: 20 MILLIGRAM DAILY;
     Dates: start: 201202, end: 20120404
  8. ZYLORIC [Concomitant]
     Active Substance: ALLOPURINOL
  9. BENDAMUSTINE [Suspect]
     Active Substance: BENDAMUSTINE
     Indication: MANTLE CELL LYMPHOMA
     Dosage: 160 MILLIGRAM DAILY; UID/QD
     Route: 041
     Dates: start: 20120228
  10. BORTEZOMIB [Suspect]
     Active Substance: BORTEZOMIB
     Indication: MANTLE CELL LYMPHOMA
     Dosage: DAYS 1, 4, 8 AND 11 CYCLIC
     Route: 058
     Dates: start: 20120228
  11. VORICONAZOLE. [Concomitant]
     Active Substance: VORICONAZOLE

REACTIONS (4)
  - Ascites [Recovered/Resolved]
  - Asthenia [Recovered/Resolved]
  - Dyspnoea [Recovered/Resolved]
  - Cardiac arrest [Fatal]

NARRATIVE: CASE EVENT DATE: 20120228
